FAERS Safety Report 7317073-9 (Version None)
Quarter: 2011Q1

REPORT INFORMATION
  Report Type: 
  Country: None (occurrence: None)
  Receive Date: 20110226
  Receipt Date: 20100920
  Transmission Date: 20110831
  Serious: No
  Sender: FDA-Public Use
  Company Number: US-ALLERGAN-1012166US

PATIENT
  Age: 55 Year
  Sex: Female

DRUGS (3)
  1. BOTOX COSMETIC [Suspect]
     Indication: SKIN WRINKLING
     Dosage: 45 UNITS, SINGLE
     Route: 030
     Dates: start: 20100824, end: 20100824
  2. BOTOX COSMETIC [Suspect]
     Dosage: 45 UNITS, UNK
     Route: 030
     Dates: start: 20100902, end: 20100902
  3. JUVEDERM [Concomitant]
     Indication: SKIN WRINKLING

REACTIONS (3)
  - INJECTION SITE REACTION [None]
  - LACRIMATION INCREASED [None]
  - EYELID PTOSIS [None]
